FAERS Safety Report 14274712 (Version 1)
Quarter: 2017Q4

REPORT INFORMATION
  Report Type: Spontaneous
  Country: GB (occurrence: GB)
  Receive Date: 20171212
  Receipt Date: 20171212
  Transmission Date: 20180321
  Serious: Yes (Other)
  Sender: FDA-Public Use
  Company Number: GB-AUROBINDO-AUR-APL-2017-44562

PATIENT
  Age: 30 Year
  Sex: Female
  Weight: 82 kg

DRUGS (1)
  1. MIRTAZAPINE. [Suspect]
     Active Substance: MIRTAZAPINE
     Indication: DEPRESSION
     Dosage: 15 MG, UNK
     Route: 048
     Dates: start: 20171020, end: 20171025

REACTIONS (1)
  - Convulsive threshold lowered [Recovered/Resolved]

NARRATIVE: CASE EVENT DATE: 20171023
